FAERS Safety Report 6593435-2 (Version None)
Quarter: 2010Q1

REPORT INFORMATION
  Report Type: 
  Country: None (occurrence: None)
  Receive Date: 20100222
  Receipt Date: 20090421
  Transmission Date: 20100710
  Serious: No
  Sender: FDA-Public Use
  Company Number: US-BRISTOL-MYERS SQUIBB COMPANY-14596761

PATIENT
  Sex: Female

DRUGS (2)
  1. ORENCIA [Suspect]
     Dates: start: 20081001
  2. METHOTREXATE [Concomitant]

REACTIONS (6)
  - ARTHRALGIA [None]
  - COUGH [None]
  - HEADACHE [None]
  - JOINT SWELLING [None]
  - MOUTH ULCERATION [None]
  - MOVEMENT DISORDER [None]
